FAERS Safety Report 7504414-2 (Version None)
Quarter: 2011Q2

REPORT INFORMATION
  Report Type: 
  Country: None (occurrence: None)
  Receive Date: 20110525
  Receipt Date: 20110516
  Transmission Date: 20111010
  Serious: Yes (Hospitalization, Other)
  Sender: FDA-Public Use
  Company Number: AR-ELI_LILLY_AND_COMPANY-AR201103008156

PATIENT
  Age: 60 Year
  Sex: Male

DRUGS (4)
  1. BYETTA [Suspect]
     Dosage: 10 UG, BID
     Dates: start: 20100801, end: 20110227
  2. METFORMIN HCL [Concomitant]
     Indication: DIABETES MELLITUS
     Dosage: 2000 MG, UNK
     Dates: end: 20110301
  3. BYETTA [Suspect]
     Indication: TYPE 2 DIABETES MELLITUS
     Dosage: 5 UG, BID
     Dates: start: 20100701, end: 20100801
  4. ENALAPRIL MALEATE [Concomitant]
     Indication: HYPERTENSION
     Dosage: UNK

REACTIONS (2)
  - DRUG DOSE OMISSION [None]
  - HEPATITIS B [None]
